FAERS Safety Report 4618515-X (Version None)
Quarter: 2005Q1

REPORT INFORMATION
  Report Type: 
  Country: None (occurrence: None)
  Receive Date: 20050323
  Receipt Date: 20050310
  Transmission Date: 20050727
  Serious: No
  Sender: FDA-Public Use
  Company Number: 2005AP01702

PATIENT
  Age: 51 Year
  Sex: Male
  Weight: 72 kg

DRUGS (23)
  1. DIPRIVAN [Suspect]
     Indication: GENERAL ANAESTHESIA
     Dosage: 4 UG/ML
     Route: 042
     Dates: start: 20050125
  2. DIPRIVAN [Suspect]
     Indication: GENERAL ANAESTHESIA
     Dosage: 2.5 - 5.0 UG/ML (MAINTAINENCE DOSE)
     Route: 042
     Dates: start: 20050125, end: 20050125
  3. FENTANEST [Suspect]
     Indication: GENERAL ANAESTHESIA
     Dosage: 525 MG DAILY
     Dates: start: 20050125, end: 20050125
  4. XYLOCAINE [Concomitant]
  5. CEFAZOLIN [Concomitant]
  6. ANAPEINE [Concomitant]
  7. NALOXONE HCL [Concomitant]
  8. DOPRAM [Concomitant]
  9. PETHIDINE HYDROCHLORIDE [Concomitant]
  10. SORBITOL LACTATED RINGER'S SOLUTION [Concomitant]
  11. VEEN-F [Concomitant]
  12. GLUCOSE [Concomitant]
  13. PLATELETS [Concomitant]
  14. FRESH FROZEN PLASMA [Concomitant]
  15. GASTER [Concomitant]
  16. ETHANOL [Concomitant]
  17. INDERAL [Concomitant]
  18. TEIGAST [Concomitant]
  19. MAGTECT [Concomitant]
  20. LACTULOSE [Concomitant]
  21. TAKEPRON [Concomitant]
  22. KAYTWO N [Concomitant]
  23. AMINOLBAN [Concomitant]

REACTIONS (5)
  - AMMONIA INCREASED [None]
  - COMA HEPATIC [None]
  - DELAYED RECOVERY FROM ANAESTHESIA [None]
  - DEPRESSED LEVEL OF CONSCIOUSNESS [None]
  - HEART RATE DECREASED [None]
